FAERS Safety Report 9542263 (Version 1)
Quarter: 2013Q3

REPORT INFORMATION
  Report Type: Spontaneous
  Country: CN (occurrence: CN)
  Receive Date: 20130923
  Receipt Date: 20130923
  Transmission Date: 20140515
  Serious: Yes (Hospitalization, Other)
  Sender: FDA-Public Use
  Company Number: CN-PFIZER INC-2013269433

PATIENT
  Age: 17 Year
  Sex: Male

DRUGS (3)
  1. PHARMORUBICIN [Suspect]
     Indication: BONE SARCOMA
     Dosage: UNK
     Dates: start: 20120221, end: 20120321
  2. HOLOXAN [Suspect]
     Indication: BONE SARCOMA
     Dosage: 4 G, 1X/DAY
     Route: 041
     Dates: start: 20120221, end: 20120225
  3. CISPLATIN [Suspect]
     Indication: BONE SARCOMA
     Dosage: UNK
     Dates: start: 20120221, end: 20120321

REACTIONS (2)
  - Hepatocellular injury [Recovering/Resolving]
  - Bone marrow failure [Recovering/Resolving]
